FAERS Safety Report 16372182 (Version 1)
Quarter: 2019Q2

REPORT INFORMATION
  Report Type: Report from Study
  Country: US (occurrence: US)
  Receive Date: 20190530
  Receipt Date: 20190530
  Transmission Date: 20190711
  Serious: Yes (Hospitalization)
  Sender: FDA-Public Use
  Company Number: US-JNJFOC-20190536427

PATIENT
  Age: 78 Year
  Sex: Female

DRUGS (14)
  1. INVOKANA [Concomitant]
     Active Substance: CANAGLIFLOZIN
  2. VICTOZA [Concomitant]
     Active Substance: LIRAGLUTIDE
  3. LEVOXYL [Concomitant]
     Active Substance: LEVOTHYROXINE SODIUM
  4. CRESTOR [Concomitant]
     Active Substance: ROSUVASTATIN CALCIUM
  5. IMBRUVICA [Suspect]
     Active Substance: IBRUTINIB
     Indication: CHRONIC LYMPHOCYTIC LEUKAEMIA
     Route: 048
     Dates: start: 20180417
  6. FLORINEF ACETATE [Concomitant]
     Active Substance: FLUDROCORTISONE ACETATE
  7. SYNTHROID [Concomitant]
     Active Substance: LEVOTHYROXINE SODIUM
  8. GABAPENTIN. [Concomitant]
     Active Substance: GABAPENTIN
  9. HUMALOG [Concomitant]
     Active Substance: INSULIN LISPRO
  10. OMEPRAZOLE. [Concomitant]
     Active Substance: OMEPRAZOLE
  11. LINZESS [Concomitant]
     Active Substance: LINACLOTIDE
  12. EVISTA [Concomitant]
     Active Substance: RALOXIFENE HYDROCHLORIDE
  13. VITAMIN D NOS [Concomitant]
     Active Substance: VITAMIN D NOS
  14. IRBESARTAN. [Concomitant]
     Active Substance: IRBESARTAN

REACTIONS (1)
  - Blood sodium decreased [Unknown]

NARRATIVE: CASE EVENT DATE: 20190509
